FAERS Safety Report 11625627 (Version 3)
Quarter: 2016Q3

REPORT INFORMATION
  Report Type: Spontaneous
  Country: BR (occurrence: BR)
  Receive Date: 20151013
  Receipt Date: 20160926
  Transmission Date: 20161109
  Serious: Yes (Other)
  Sender: FDA-Public Use
  Company Number: BR-JNJFOC-20151007028

PATIENT
  Sex: Female

DRUGS (6)
  1. REMICADE [Suspect]
     Active Substance: INFLIXIMAB
     Indication: CROHN^S DISEASE
     Route: 042
  2. MESALAZINE [Concomitant]
     Active Substance: MESALAMINE
     Route: 065
  3. REMICADE [Suspect]
     Active Substance: INFLIXIMAB
     Indication: CROHN^S DISEASE
     Dosage: 5 VIALS
     Route: 042
     Dates: start: 2011
  4. REMICADE [Suspect]
     Active Substance: INFLIXIMAB
     Indication: CROHN^S DISEASE
     Route: 042
     Dates: start: 2011
  5. AZATHIOPRINE. [Concomitant]
     Active Substance: AZATHIOPRINE
     Route: 065
  6. REMICADE [Suspect]
     Active Substance: INFLIXIMAB
     Indication: CROHN^S DISEASE
     Route: 042
     Dates: start: 20160714

REACTIONS (9)
  - Drug ineffective [Not Recovered/Not Resolved]
  - Off label use [Unknown]
  - Diarrhoea haemorrhagic [Recovered/Resolved]
  - Oedema [Recovered/Resolved]
  - Crohn^s disease [Unknown]
  - Urinary tract infection [Not Recovered/Not Resolved]
  - Pain [Recovered/Resolved]
  - Inappropriate schedule of drug administration [Unknown]
  - Drug dose omission [Unknown]

NARRATIVE: CASE EVENT DATE: 2011
